FAERS Safety Report 11972189 (Version 4)
Quarter: 2016Q2

REPORT INFORMATION
  Report Type: Report from Study
  Country: CO (occurrence: CO)
  Receive Date: 20160128
  Receipt Date: 20160517
  Transmission Date: 20160815
  Serious: Yes (Other)
  Sender: FDA-Public Use
  Company Number: PHHY2015CO153301

PATIENT
  Age: 60 Year
  Sex: Female
  Weight: 66 kg

DRUGS (8)
  1. AFINITOR [Suspect]
     Active Substance: EVEROLIMUS
     Indication: RENAL CANCER
  2. ENALAPRIL [Concomitant]
     Active Substance: ENALAPRIL
     Indication: HYPERTENSION
     Dosage: 10 MG, BID (ONE IN THE MORNING AND ONE AT NIGHT)
     Route: 065
     Dates: start: 2014
  3. OXYGEN. [Concomitant]
     Active Substance: OXYGEN
     Indication: METASTASES TO LUNG
  4. OXYGEN. [Concomitant]
     Active Substance: OXYGEN
     Indication: BREAST CANCER METASTATIC
     Route: 065
  5. SPIRONOLACTONE. [Concomitant]
     Active Substance: SPIRONOLACTONE
     Indication: CARDIAC DISORDER
     Dosage: 25 MG, QD
     Route: 065
     Dates: start: 2014
  6. AFINITOR [Suspect]
     Active Substance: EVEROLIMUS
     Indication: BREAST CANCER METASTATIC
     Dosage: 10 MG, BID
     Route: 048
     Dates: start: 20140723
  7. AFINITOR [Suspect]
     Active Substance: EVEROLIMUS
     Indication: NEUROENDOCRINE TUMOUR
  8. AROMASIN [Concomitant]
     Active Substance: EXEMESTANE
     Indication: NEOPLASM MALIGNANT
     Dosage: 25 MG, QD
     Route: 048
     Dates: start: 20140723

REACTIONS (5)
  - Asphyxia [Not Recovered/Not Resolved]
  - Myocarditis [Unknown]
  - Speech disorder [Unknown]
  - Bradycardia [Unknown]
  - Mouth ulceration [Unknown]

NARRATIVE: CASE EVENT DATE: 2015
